FAERS Safety Report 17112083 (Version 1)
Quarter: 2019Q4

REPORT INFORMATION
  Report Type: Spontaneous
  Country: US (occurrence: US)
  Receive Date: 20191111
  Receipt Date: 20191111
  Transmission Date: 20200122
  Serious: Yes (Hospitalization)
  Sender: FDA-Public Use
  Company Number: None

PATIENT
  Age: 71 Year
  Sex: Female

DRUGS (1)
  1. CAPECITABINE TAB 500MG [Suspect]
     Active Substance: CAPECITABINE
     Dosage: ?          OTHER DOSE:1500;?
     Route: 048
     Dates: start: 20191104

REACTIONS (3)
  - Diarrhoea [None]
  - Atrial fibrillation [None]
  - Neuropathy peripheral [None]

NARRATIVE: CASE EVENT DATE: 20191104
